FAERS Safety Report 4867206-9 (Version None)
Quarter: 2005Q4

REPORT INFORMATION
  Report Type: 
  Country: None (occurrence: None)
  Receive Date: 20051227
  Receipt Date: 20051227
  Transmission Date: 20060501
  Serious: Yes (Hospitalization)
  Sender: FDA-Public Use
  Company Number: None

PATIENT
  Age: 47 Year
  Sex: Male
  Weight: 111.4 kg

DRUGS (7)
  1. ZOCOR [Suspect]
  2. TRAMADOL HCL [Concomitant]
  3. INSULIN NPH HUMAN INJ [Concomitant]
  4. LEVOFLOXACIN [Concomitant]
  5. INSULIN REG HUMAN 100 U/ML INJ NOVOLIN R [Concomitant]
  6. SERTRALINE HCL [Concomitant]
  7. OMEPRAZOLE [Concomitant]

REACTIONS (1)
  - HEPATIC ENZYME ABNORMAL [None]
